FAERS Safety Report 15181443 (Version 1)
Quarter: 2018Q3

REPORT INFORMATION
  Report Type: Spontaneous
  Country: US (occurrence: US)
  Receive Date: 20180723
  Receipt Date: 20180723
  Transmission Date: 20181010
  Serious: No
  Sender: FDA-Public Use
  Company Number: US-SA-2018SA188530

PATIENT
  Age: 33 Year
  Sex: Female

DRUGS (1)
  1. NASACORT ALLERGY 24HR [Suspect]
     Active Substance: TRIAMCINOLONE ACETONIDE
     Indication: HYPERSENSITIVITY
     Dosage: 1 SPRAY IEN, QD
     Route: 045
     Dates: start: 20180716, end: 20180719

REACTIONS (2)
  - Fatigue [Unknown]
  - Hypersomnia [Unknown]

NARRATIVE: CASE EVENT DATE: 201807
